FAERS Safety Report 8512752-X (Version None)
Quarter: 2012Q3

REPORT INFORMATION
  Report Type: 
  Country: None (occurrence: None)
  Receive Date: 20120716
  Receipt Date: 20120711
  Transmission Date: 20120928
  Serious: No
  Sender: FDA-Public Use
  Company Number: US-PFIZER INC-2012167136

PATIENT
  Sex: Male
  Weight: 108.84 kg

DRUGS (4)
  1. SUMAVEL DOSEPRO [Suspect]
     Indication: MIGRAINE
     Dosage: 6 MG, UNK
     Dates: start: 20120604, end: 20120605
  2. LOVAZA [Concomitant]
     Dosage: UNK
  3. LORTAB [Concomitant]
     Dosage: UNK
  4. LYRICA [Suspect]
     Dosage: UNK

REACTIONS (8)
  - DRUG EFFECT DECREASED [None]
  - FEELING ABNORMAL [None]
  - DISTURBANCE IN ATTENTION [None]
  - NAUSEA [None]
  - INJECTION SITE HAEMORRHAGE [None]
  - DIZZINESS [None]
  - SOMNOLENCE [None]
  - INJECTION SITE PAIN [None]
